FAERS Safety Report 15030424 (Version 1)
Quarter: 2018Q2

REPORT INFORMATION
  Report Type: Spontaneous
  Country: FR (occurrence: FR)
  Receive Date: 20180619
  Receipt Date: 20180619
  Transmission Date: 20180711
  Serious: Yes (Hospitalization)
  Sender: FDA-Public Use
  Company Number: FR-PFIZER INC-2018244614

PATIENT
  Age: 81 Year
  Sex: Male
  Weight: 67 kg

DRUGS (8)
  1. PREVISCAN /00261401/ [Concomitant]
     Active Substance: PENTOXIFYLLINE
     Route: 048
  2. KARDEGIC [Concomitant]
     Active Substance: ASPIRIN DL-LYSINE
     Route: 048
  3. AMLODIPINE [Concomitant]
     Active Substance: AMLODIPINE BESYLATE
     Dosage: 5 MG, 1X/DAY
     Route: 048
  4. CUBICIN [Suspect]
     Active Substance: DAPTOMYCIN
     Indication: INFECTION
     Dosage: 700 MG, 1X/DAY
     Route: 041
     Dates: start: 20180328, end: 20180425
  5. MEROPENEM. [Suspect]
     Active Substance: MEROPENEM
     Indication: INFECTION
     Dosage: 4 G, 1X/DAY
     Route: 041
     Dates: start: 20180328, end: 20180425
  6. LOSARTAN POTASSIUM. [Concomitant]
     Active Substance: LOSARTAN POTASSIUM
     Dosage: 100 MG, 1X/DAY
     Route: 048
  7. NOVONORM [Concomitant]
     Active Substance: REPAGLINIDE
     Dosage: 3 MG, 1X/DAY
     Route: 048
  8. SIMVASTATINE [Concomitant]
     Active Substance: SIMVASTATIN
     Route: 048

REACTIONS (2)
  - Rash maculo-papular [Recovered/Resolved]
  - Eosinophilic pneumonia acute [Recovering/Resolving]

NARRATIVE: CASE EVENT DATE: 20180425
